FAERS Safety Report 4264805-2 (Version None)
Quarter: 2004Q1

REPORT INFORMATION
  Report Type: 
  Country: None (occurrence: None)
  Receive Date: 20040105
  Receipt Date: 20031223
  Transmission Date: 20041129
  Serious: Yes (Other)
  Sender: FDA-Public Use
  Company Number: 2003-01-5043

PATIENT
  Sex: Male
  Weight: 102.0593 kg

DRUGS (4)
  1. CORICIDIN D SRT [Suspect]
     Indication: HYPERSENSITIVITY
     Dosage: ORAL
     Route: 048
  2. ALKA-SELTZER PLUS TABLETS [Concomitant]
  3. ALKA-SELTZER PLUS COLD AND COUGH MEDICINE [Concomitant]
  4. NASAL PREPARATION (NOS) [Concomitant]

REACTIONS (2)
  - HAEMORRHAGIC STROKE [None]
  - SUBDURAL HAEMATOMA [None]
